FAERS Safety Report 9706516 (Version 2)
Quarter: 2013Q4

REPORT INFORMATION
  Report Type: Report from Study
  Country: AR (occurrence: AR)
  Receive Date: 20131125
  Receipt Date: 20131210
  Transmission Date: 20140711
  Serious: Yes (Death, Other)
  Sender: FDA-Public Use
  Company Number: AR-US-EMD SERONO, INC.-7251694

PATIENT
  Age: 34 Year
  Sex: Male

DRUGS (1)
  1. REBIF [Suspect]
     Indication: RELAPSING-REMITTING MULTIPLE SCLEROSIS
     Route: 058
     Dates: start: 2011, end: 20130830

REACTIONS (4)
  - Sudden death [Fatal]
  - Retinal detachment [Unknown]
  - Central nervous system lesion [Unknown]
  - Central nervous system lesion [Unknown]
